FAERS Safety Report 8818814 (Version 1)
Quarter: 2012Q4

REPORT INFORMATION
  Report Type: Spontaneous
  Country: US (occurrence: None)
  Receive Date: 20121004
  Receipt Date: 20121004
  Transmission Date: 20130627
  Serious: Yes (Disabling, Other)
  Sender: FDA-Public Use
  Company Number: None

PATIENT
  Age: 67 Year
  Sex: Male
  Weight: 76.66 kg

DRUGS (2)
  1. FLUOXETINE [Suspect]
     Indication: DEPRESSION
     Dosage: 10 mg 1/day for 1 week
     Dates: start: 20120303, end: 20120309
  2. FLUOXETINE [Suspect]
     Indication: DEPRESSION
     Dosage: 10 mg 2/day ^6 days
     Dates: start: 20120310, end: 20120315

REACTIONS (1)
  - Malaise [None]
